FAERS Safety Report 7868186-4 (Version None)
Quarter: 2011Q4

REPORT INFORMATION
  Report Type: 
  Country: None (occurrence: None)
  Receive Date: 20111028
  Receipt Date: 20111019
  Transmission Date: 20120403
  Serious: Yes (Hospitalization)
  Sender: FDA-Public Use
  Company Number: US-ROCHE-1004495

PATIENT
  Sex: Male
  Weight: 84.6 kg

DRUGS (2)
  1. VEMURAFENIB [Suspect]
     Route: 048
  2. VEMURAFENIB [Suspect]
     Indication: METASTATIC MALIGNANT MELANOMA
     Dosage: DATE OF MOST RECENT DOSE OF STUDY DRUG: 08/OCT/2011
     Route: 048
     Dates: start: 20110816

REACTIONS (2)
  - OEDEMA PERIPHERAL [None]
  - CELLULITIS [None]
